FAERS Safety Report 6317655-7 (Version None)
Quarter: 2009Q3

REPORT INFORMATION
  Report Type: 
  Country: None (occurrence: None)
  Receive Date: 20090821
  Receipt Date: 20071010
  Transmission Date: 20100115
  Serious: Yes (Other)
  Sender: FDA-Public Use
  Company Number: US-ASTRAZENECA-2007UW18869

PATIENT
  Age: 15820 Day
  Sex: Male
  Weight: 86.2 kg

DRUGS (13)
  1. SEROQUEL [Suspect]
     Dosage: 100MG - 300MG
     Route: 048
     Dates: start: 19991216
  2. ZYPREXA [Concomitant]
  3. RISPERDAL [Concomitant]
  4. XANAX [Concomitant]
     Route: 048
     Dates: start: 19960101
  5. PROZAC [Concomitant]
     Route: 048
     Dates: start: 19960101
  6. CELEXA [Concomitant]
     Route: 048
     Dates: start: 19990125
  7. WELLBUTRIN [Concomitant]
     Route: 048
     Dates: start: 20000707
  8. LEXAPRO [Concomitant]
     Route: 048
     Dates: start: 20021104
  9. NEURONTIN [Concomitant]
     Route: 048
     Dates: start: 20020522
  10. HYDROCHLOROTHIAZIDE [Concomitant]
     Dosage: 25MG -60MG
     Route: 048
     Dates: start: 20020522
  11. TRAZODONE HCL [Concomitant]
     Route: 048
     Dates: start: 19970909
  12. LIPITOR [Concomitant]
     Route: 048
     Dates: start: 20020522
  13. GEODON [Concomitant]
     Route: 048
     Dates: start: 20021105

REACTIONS (3)
  - DIABETES MELLITUS [None]
  - DIABETIC NEUROPATHY [None]
  - TYPE 2 DIABETES MELLITUS [None]
